FAERS Safety Report 6925599-2 (Version None)
Quarter: 2010Q3

REPORT INFORMATION
  Report Type: 
  Country: None (occurrence: None)
  Receive Date: 20100816
  Receipt Date: 20100804
  Transmission Date: 20110219
  Serious: No
  Sender: FDA-Public Use
  Company Number: US-B.I. PHARMACEUTICALS,INC./RIDGEFIELD-2010-BP-08910BP

PATIENT
  Sex: Female

DRUGS (8)
  1. SPIRIVA [Suspect]
     Indication: CHRONIC OBSTRUCTIVE PULMONARY DISEASE
     Dosage: 18 MCG
     Route: 055
     Dates: start: 20090101, end: 20100601
  2. TRAZODONE HCL [Concomitant]
     Indication: INSOMNIA
  3. BENICAR [Concomitant]
     Indication: HYPERTENSION
  4. LEVOTHYROXINE SODIUM [Concomitant]
     Indication: THYROID DISORDER
  5. CELEBREX [Concomitant]
     Indication: ARTHRITIS
  6. PRAVASTATIN [Concomitant]
     Indication: BLOOD CHOLESTEROL INCREASED
  7. CODEINE SULFATE [Concomitant]
     Indication: PAIN IN EXTREMITY
  8. LANOXIN [Concomitant]
     Indication: MYOCARDIAL INFARCTION

REACTIONS (2)
  - DYSPHAGIA [None]
  - POLYP [None]
